FAERS Safety Report 11674092 (Version 1)
Quarter: 2015Q4

REPORT INFORMATION
  Report Type: Spontaneous
  Country: US (occurrence: US)
  Receive Date: 20151027
  Receipt Date: 20151027
  Transmission Date: 20160304
  Serious: No
  Sender: FDA-Public Use
  Company Number: US-ELI_LILLY_AND_COMPANY-US201007007779

PATIENT
  Age: 74 Year
  Sex: Female

DRUGS (1)
  1. FORTEO [Suspect]
     Active Substance: TERIPARATIDE
     Indication: OSTEOPOROSIS
     Dosage: 20 UG, UNKNOWN
     Route: 065
     Dates: start: 20100719, end: 20100727

REACTIONS (7)
  - Weight decreased [Unknown]
  - Asthenia [Unknown]
  - Drug dose omission [Unknown]
  - Retching [Unknown]
  - Nausea [Unknown]
  - Feeling abnormal [Unknown]
  - Arthralgia [Unknown]

NARRATIVE: CASE EVENT DATE: 20100725
